FAERS Safety Report 7550304-9 (Version None)
Quarter: 2011Q2

REPORT INFORMATION
  Report Type: 
  Country: None (occurrence: None)
  Receive Date: 20110615
  Receipt Date: 20110516
  Transmission Date: 20111010
  Serious: Yes (Hospitalization)
  Sender: FDA-Public Use
  Company Number: IT-BAYER-2011-040793

PATIENT
  Age: 69 Year
  Sex: Male

DRUGS (5)
  1. TENORETIC [Concomitant]
     Dosage: 125 MG, QD
     Route: 048
     Dates: start: 20080401, end: 20110420
  2. NAPROXEN SODIUM [Suspect]
     Indication: TOOTHACHE
     Dosage: 550 MG, QD
     Route: 048
     Dates: start: 20110415, end: 20110420
  3. CARDURA [Concomitant]
     Indication: HYPERTENSION
     Dosage: 2 MG, QD
     Route: 048
     Dates: start: 20090401, end: 20110420
  4. CELEBREX [Suspect]
     Indication: ARTHRALGIA
     Dosage: 200 MG, QD
     Route: 048
     Dates: start: 20110401, end: 20110420
  5. METFORAL [Concomitant]
     Indication: DIABETES MELLITUS
     Dosage: 500 MG, QD
     Route: 048
     Dates: start: 20110401, end: 20110420

REACTIONS (3)
  - HAEMATEMESIS [None]
  - MELAENA [None]
  - GASTRIC ULCER [None]
